FAERS Safety Report 5531037-7 (Version None)
Quarter: 2007Q4

REPORT INFORMATION
  Report Type: 
  Country: None (occurrence: None)
  Receive Date: 20071130
  Receipt Date: 20071119
  Transmission Date: 20080405
  Serious: Yes (Other)
  Sender: FDA-Public Use
  Company Number: US-PFIZER INC-2007098582

PATIENT
  Age: 28 Year
  Sex: Male
  Weight: 90.9 kg

DRUGS (3)
  1. CHANTIX [Suspect]
     Indication: SMOKING CESSATION THERAPY
  2. VALIUM [Concomitant]
  3. VICODIN [Concomitant]

REACTIONS (11)
  - AGGRESSION [None]
  - COGNITIVE DISORDER [None]
  - CRYING [None]
  - DISORIENTATION [None]
  - FEELING ABNORMAL [None]
  - GAMBLING [None]
  - HOSTILITY [None]
  - IMPULSIVE BEHAVIOUR [None]
  - INSOMNIA [None]
  - MALAISE [None]
  - PARTNER STRESS [None]
